FAERS Safety Report 15281548 (Version 1)
Quarter: 2018Q3

REPORT INFORMATION
  Report Type: Spontaneous
  Country: CL (occurrence: CL)
  Receive Date: 20180815
  Receipt Date: 20180815
  Transmission Date: 20181010
  Serious: Yes (Other)
  Sender: FDA-Public Use
  Company Number: CL-ANIPHARMA-2018-CL-000002

PATIENT
  Age: 6 Year
  Sex: Female

DRUGS (4)
  1. VALPROIC ACID (NON?SPECIFIC) [Suspect]
     Active Substance: VALPROIC ACID
     Indication: EPILEPSY
  2. PROPOFOL. [Suspect]
     Active Substance: PROPOFOL
     Indication: STATUS EPILEPTICUS
     Route: 042
     Dates: start: 20161016
  3. LLEVETIRACETAM [Concomitant]
  4. CLONAZEPAM. [Concomitant]
     Active Substance: CLONAZEPAM

REACTIONS (3)
  - Drug interaction [Unknown]
  - Propofol infusion syndrome [Unknown]
  - Lactic acidosis [Unknown]
